FAERS Safety Report 4355973-2 (Version None)
Quarter: 2004Q2

REPORT INFORMATION
  Report Type: 
  Country: None (occurrence: None)
  Receive Date: 20040507
  Receipt Date: 20040507
  Transmission Date: 20050107
  Serious: Yes (Other)
  Sender: FDA-Public Use
  Company Number: None

PATIENT
  Age: 40 Year
  Sex: Female
  Weight: 136.0791 kg

DRUGS (2)
  1. MARCAINE [Suspect]
     Indication: SPINAL ANAESTHESIA
     Dosage: 1.4 CC SUBARACHNOID
     Dates: start: 20040504
  2. MARCAINE [Suspect]

REACTIONS (2)
  - ANAESTHETIC COMPLICATION [None]
  - PHARMACEUTICAL PRODUCT COMPLAINT [None]
